FAERS Safety Report 15640442 (Version 1)
Quarter: 2018Q4

REPORT INFORMATION
  Report Type: Spontaneous
  Country: US (occurrence: US)
  Receive Date: 20181120
  Receipt Date: 20181120
  Transmission Date: 20190205
  Serious: Yes (Life-Threatening)
  Sender: FDA-Public Use
  Company Number: US-ASTRAZENECA-2018SF49487

PATIENT
  Age: 56 Year
  Sex: Male
  Weight: 68.1 kg

DRUGS (38)
  1. INCB039110 [Suspect]
     Active Substance: ITACITINIB
     Indication: GRAFT VERSUS HOST DISEASE
     Route: 048
     Dates: start: 20160610, end: 20160610
  2. BECLOMETHASONE [Concomitant]
     Active Substance: BECLOMETHASONE
     Dates: start: 20160425
  3. ZYPREXA [Concomitant]
     Active Substance: OLANZAPINE
     Dates: start: 20160506
  4. FUROSEMIDE. [Concomitant]
     Active Substance: FUROSEMIDE
     Dates: start: 20160506
  5. TACROLIMUS. [Concomitant]
     Active Substance: TACROLIMUS
  6. PRILOSEC [Suspect]
     Active Substance: OMEPRAZOLE MAGNESIUM
     Route: 048
     Dates: start: 20160511, end: 20160512
  7. NOXAFIL [Concomitant]
     Active Substance: POSACONAZOLE
     Dates: start: 20160426
  8. CALCIUM GLUCONATE. [Concomitant]
     Active Substance: CALCIUM GLUCONATE
     Dates: start: 20160426, end: 20160426
  9. GAMMAGARD [Concomitant]
     Active Substance: HUMAN IMMUNOGLOBULIN G
     Dosage: 5 PERCENT
     Dates: start: 20160517, end: 20160517
  10. COMPAZINE [Concomitant]
     Active Substance: PROCHLORPERAZINE MALEATE
     Dates: start: 20160518, end: 20160519
  11. INTRALIPID [Concomitant]
     Active Substance: EGG PHOSPHOLIPIDS\GLYCERIN\SOYBEAN OIL
     Dates: start: 20160505, end: 20160522
  12. TOPROL XL [Suspect]
     Active Substance: METOPROLOL SUCCINATE
     Route: 048
     Dates: start: 20160502
  13. METHYLPREDNISOLONE. [Suspect]
     Active Substance: METHYLPREDNISOLONE
     Route: 042
     Dates: start: 20160610, end: 20160623
  14. SODIUM BICARBONATE. [Concomitant]
     Active Substance: SODIUM BICARBONATE
     Dates: start: 20160430, end: 20160502
  15. AMBIEN [Concomitant]
     Active Substance: ZOLPIDEM TARTRATE
     Dates: start: 20160516
  16. ENTOCORT [Suspect]
     Active Substance: BUDESONIDE
     Indication: GRAFT VERSUS HOST DISEASE
     Route: 048
     Dates: start: 20160425
  17. INCB039110 [Suspect]
     Active Substance: ITACITINIB
     Indication: GRAFT VERSUS HOST DISEASE
     Route: 048
     Dates: start: 20160428, end: 20160523
  18. INCB039110 [Suspect]
     Active Substance: ITACITINIB
     Indication: GRAFT VERSUS HOST DISEASE
     Route: 048
     Dates: start: 20160603, end: 20160609
  19. METHYLPREDNISOLONE. [Suspect]
     Active Substance: METHYLPREDNISOLONE
     Route: 042
     Dates: start: 20160512, end: 20160519
  20. METHYLPREDNISOLONE. [Suspect]
     Active Substance: METHYLPREDNISOLONE
     Route: 042
     Dates: start: 20160624, end: 20160627
  21. BACTRIM DS [Concomitant]
     Active Substance: SULFAMETHOXAZOLE\TRIMETHOPRIM
     Dates: start: 20160502, end: 20160509
  22. NACL [Concomitant]
     Active Substance: SODIUM CHLORIDE
     Dates: start: 20160504, end: 20160504
  23. K-DUR [Concomitant]
     Active Substance: POTASSIUM CHLORIDE
     Dates: start: 20160429, end: 20160524
  24. BENADRYL [Concomitant]
     Active Substance: DIPHENHYDRAMINE HYDROCHLORIDE
     Dates: start: 20160505, end: 20160517
  25. ATIVAN [Concomitant]
     Active Substance: LORAZEPAM
     Dates: start: 20160510, end: 20160510
  26. NEXIUM [Suspect]
     Active Substance: ESOMEPRAZOLE MAGNESIUM
     Route: 048
     Dates: start: 20160512, end: 20160512
  27. METHYLPREDNISOLONE. [Suspect]
     Active Substance: METHYLPREDNISOLONE
     Route: 042
     Dates: start: 20160519, end: 20160528
  28. POTASSIUM CHLORIDE. [Concomitant]
     Active Substance: POTASSIUM CHLORIDE
     Dates: start: 20160504, end: 20160524
  29. OMEPRAZOLE. [Suspect]
     Active Substance: OMEPRAZOLE
     Route: 048
     Dates: start: 20160518, end: 20160523
  30. METHYLPREDNISOLONE. [Suspect]
     Active Substance: METHYLPREDNISOLONE
     Route: 042
     Dates: start: 20160528, end: 20160610
  31. VFEND [Concomitant]
     Active Substance: VORICONAZOLE
     Dates: start: 20160508
  32. PENTAM [Concomitant]
     Active Substance: PENTAMIDINE ISETHIONATE
     Dates: start: 20160510, end: 20160510
  33. ACETAMINOPHEN. [Concomitant]
     Active Substance: ACETAMINOPHEN
     Dates: start: 20160517, end: 20160517
  34. METHYLPREDNISOLONE. [Suspect]
     Active Substance: METHYLPREDNISOLONE
     Route: 042
     Dates: start: 20160425, end: 20160502
  35. METHYLPREDNISOLONE. [Suspect]
     Active Substance: METHYLPREDNISOLONE
     Route: 042
     Dates: start: 20160503, end: 20160512
  36. MAGNESIUM SULFATE. [Concomitant]
     Active Substance: MAGNESIUM SULFATE
     Dates: start: 20160501, end: 20160524
  37. NORVASC [Concomitant]
     Active Substance: AMLODIPINE BESYLATE
     Dates: start: 20160503, end: 20160523
  38. HUMALOG [Concomitant]
     Active Substance: INSULIN LISPRO
     Dates: start: 20160505

REACTIONS (7)
  - Streptococcal bacteraemia [Recovered/Resolved with Sequelae]
  - Intestinal perforation [Unknown]
  - Gastrointestinal haemorrhage [Recovered/Resolved]
  - Vasculitis gastrointestinal [Unknown]
  - Intra-abdominal haemorrhage [Recovered/Resolved with Sequelae]
  - Pneumatosis intestinalis [Recovered/Resolved with Sequelae]
  - Pneumoperitoneum [Recovered/Resolved with Sequelae]

NARRATIVE: CASE EVENT DATE: 20160523
